FAERS Safety Report 6198403-0 (Version None)
Quarter: 2009Q2

REPORT INFORMATION
  Report Type: 
  Country: None (occurrence: None)
  Receive Date: 20090521
  Receipt Date: 20090515
  Transmission Date: 20091009
  Serious: Yes (Other)
  Sender: FDA-Public Use
  Company Number: US-ASTRAZENECA-2007UW09668

PATIENT
  Age: 39 Year
  Sex: Male
  Weight: 124.7 kg

DRUGS (39)
  1. SEROQUEL [Suspect]
     Indication: SCHIZOPHRENIA
     Route: 048
     Dates: start: 20010328, end: 20030809
  2. SEROQUEL [Suspect]
     Indication: BIPOLAR DISORDER
     Route: 048
     Dates: start: 20010328, end: 20030809
  3. SEROQUEL [Suspect]
     Route: 048
     Dates: start: 20030809
  4. SEROQUEL [Suspect]
     Route: 048
     Dates: start: 20030809
  5. SEROQUEL [Suspect]
     Dosage: 100MG - 400MG
     Route: 048
     Dates: start: 20040112, end: 20050101
  6. SEROQUEL [Suspect]
     Dosage: 100MG - 400MG
     Route: 048
     Dates: start: 20040112, end: 20050101
  7. SEROQUEL [Suspect]
     Route: 048
     Dates: start: 20050101, end: 20051006
  8. SEROQUEL [Suspect]
     Route: 048
     Dates: start: 20050101, end: 20051006
  9. SEROQUEL [Suspect]
     Route: 048
     Dates: start: 20050701, end: 20051006
  10. SEROQUEL [Suspect]
     Route: 048
     Dates: start: 20050701, end: 20051006
  11. SEROQUEL [Suspect]
     Route: 048
     Dates: start: 20051006, end: 20060119
  12. SEROQUEL [Suspect]
     Route: 048
     Dates: start: 20051006, end: 20060119
  13. SEROQUEL [Suspect]
     Route: 048
     Dates: start: 20060119, end: 20061003
  14. SEROQUEL [Suspect]
     Route: 048
     Dates: start: 20060119, end: 20061003
  15. DEPAKOTE [Concomitant]
     Dates: start: 20030101
  16. NEURONTIN [Concomitant]
     Dates: start: 20041103, end: 20060418
  17. CLONAZEPAM [Concomitant]
     Dates: start: 20031217
  18. VALIUM [Concomitant]
     Dates: start: 20010101
  19. LEXAPRO [Concomitant]
     Dates: start: 20031022
  20. PROTONIX [Concomitant]
     Dates: start: 20030101
  21. TRAZODONE HCL [Concomitant]
     Dates: start: 20030101
  22. ADVAIR DISKUS 100/50 [Concomitant]
  23. ALBUTEROL SULFATE [Concomitant]
  24. CARISOPRODOL [Concomitant]
  25. INTERFERON [Concomitant]
  26. AMITRIPTYLINE HCL [Concomitant]
  27. TRILEPTAL [Concomitant]
     Route: 048
     Dates: start: 20050712, end: 20070116
  28. TEQUIN [Concomitant]
     Dates: start: 20060112
  29. NIASPAN [Concomitant]
     Route: 048
  30. LYRICA [Concomitant]
     Dosage: 50MG, 75MG
     Dates: start: 20060201
  31. TEMAZEPAM [Concomitant]
  32. CYMBALTA [Concomitant]
     Dates: start: 20061001
  33. ABILIFY [Concomitant]
  34. LAMICTAL [Concomitant]
     Dates: start: 20010101
  35. CELEBREX [Concomitant]
     Route: 048
     Dates: start: 20070507
  36. ZYPREXA [Concomitant]
     Dates: start: 20010101
  37. RISPERDAL [Concomitant]
  38. GEODON [Concomitant]
  39. THORAZINE [Concomitant]

REACTIONS (13)
  - ABDOMINAL PAIN UPPER [None]
  - CHEST PAIN [None]
  - DIABETES WITH HYPEROSMOLARITY [None]
  - DIABETIC FOOT [None]
  - DYSLIPIDAEMIA [None]
  - HEPATITIS C [None]
  - HYPERTRIGLYCERIDAEMIA [None]
  - IMPAIRED FASTING GLUCOSE [None]
  - MENTAL DISORDER [None]
  - NEUROPATHY PERIPHERAL [None]
  - PNEUMONIA [None]
  - SARCOIDOSIS [None]
  - TYPE 2 DIABETES MELLITUS [None]
